FAERS Safety Report 8577497-9 (Version None)
Quarter: 2012Q3

REPORT INFORMATION
  Report Type: 
  Country: None (occurrence: None)
  Receive Date: 20120807
  Receipt Date: 20120726
  Transmission Date: 20120928
  Serious: No
  Sender: FDA-Public Use
  Company Number: US-ASTRAZENECA-2011SE34892

PATIENT
  Age: 63 Year
  Sex: Female

DRUGS (13)
  1. DIPHENHYDRAMINE HCL [Concomitant]
  2. LOSARTAN POTASSIUM [Concomitant]
  3. FLEXERIL [Concomitant]
  4. UNSPECIFIED STEROIDS [Concomitant]
  5. ACYCLOVIR [Concomitant]
  6. SINGULAIR [Concomitant]
  7. IBUPROFEN [Concomitant]
  8. SPIRIVA [Concomitant]
  9. ALBUTEROL [Concomitant]
  10. FLUTICASONE PROPIONATE [Concomitant]
  11. PROVEXTAL [Concomitant]
  12. NEXIUM [Suspect]
     Route: 048
  13. FLUTICASONE PROPIONATE [Concomitant]

REACTIONS (6)
  - SINUSITIS [None]
  - CHRONIC OBSTRUCTIVE PULMONARY DISEASE [None]
  - DRUG DOSE OMISSION [None]
  - DYSPHONIA [None]
  - ASTHMA [None]
  - INTENTIONAL DRUG MISUSE [None]
